FAERS Safety Report 11406648 (Version 2)
Quarter: 2016Q1

REPORT INFORMATION
  Report Type: Report from Study
  Country: AU (occurrence: AU)
  Receive Date: 20150821
  Receipt Date: 20160315
  Transmission Date: 20160525
  Serious: Yes (Hospitalization)
  Sender: FDA-Public Use
  Company Number: AU-UCBSA-098911

PATIENT
  Age: 44 Year
  Sex: Female
  Weight: 110 kg

DRUGS (12)
  1. CELEBREX [Concomitant]
     Active Substance: CELECOXIB
     Indication: RHEUMATOID ARTHRITIS
     Dosage: 200 MG, 2X/DAY (BID)
     Route: 048
     Dates: start: 201212
  2. NORSPAN [Concomitant]
     Active Substance: BUPRENORPHINE
     Indication: BACK PAIN
     Dosage: 200 ?G, WEEKLY (QW)
     Route: 061
     Dates: start: 201110
  3. PARACETAMOL [Concomitant]
     Active Substance: ACETAMINOPHEN
     Dosage: 500 MG, AS NEEDED (PRN)
     Route: 048
     Dates: start: 201110
  4. METHOTREXATE [Concomitant]
     Active Substance: METHOTREXATE
     Indication: RHEUMATOID ARTHRITIS
     Dosage: 25 MG, WEEKLY (QW)
     Route: 048
     Dates: start: 201210, end: 20130924
  5. DESVENLAFAXINE. [Concomitant]
     Active Substance: DESVENLAFAXINE
     Indication: DEPRESSION
     Dosage: 100 MG, ONCE DAILY (QD)
     Route: 048
     Dates: start: 201206
  6. *ADALIMUMAB [Suspect]
     Active Substance: ADALIMUMAB
     Indication: RHEUMATOID ARTHRITIS
     Dosage: 7 DOSES
     Route: 058
     Dates: start: 20130624, end: 20130916
  7. PREGABALIN. [Concomitant]
     Active Substance: PREGABALIN
     Indication: BACK PAIN
     Dosage: 150 MG, 2X/DAY (BID)
     Route: 048
     Dates: start: 201303, end: 20130902
  8. FOLIC ACID. [Concomitant]
     Active Substance: FOLIC ACID
     Indication: VITAMIN SUPPLEMENTATION
     Dosage: 5 MG, ONCE DAILY (QD)
     Route: 048
     Dates: start: 201210, end: 20130922
  9. PARACETAMOL [Concomitant]
     Active Substance: ACETAMINOPHEN
     Indication: BACK PAIN
     Dosage: 1 G, 2X/DAY (BID)
     Route: 048
     Dates: start: 201110
  10. PREDNISOLONE. [Concomitant]
     Active Substance: PREDNISOLONE
     Indication: RHEUMATOID ARTHRITIS
     Dosage: 2 MG, ONCE DAILY (QD)
     Route: 048
     Dates: start: 201210, end: 20130925
  11. PREGABALIN. [Concomitant]
     Active Substance: PREGABALIN
     Dosage: 300 MG, 2X/DAY (BID)
     Route: 048
     Dates: start: 20130903
  12. ENDONE [Concomitant]
     Active Substance: OXYCODONE HYDROCHLORIDE
     Indication: BACK PAIN
     Dosage: 5 MG, 3X/DAY (TID)
     Route: 048
     Dates: start: 201110, end: 20130922

REACTIONS (1)
  - Venous thrombosis [Recovered/Resolved]

NARRATIVE: CASE EVENT DATE: 20130917
